FAERS Safety Report 8133241-0 (Version None)
Quarter: 2012Q1

REPORT INFORMATION
  Report Type: 
  Country: None (occurrence: None)
  Receive Date: 20120213
  Receipt Date: 20120210
  Transmission Date: 20120608
  Serious: Yes (Death)
  Sender: FDA-Public Use
  Company Number: PHHY2012BD011504

PATIENT
  Age: 70 Year
  Sex: Male

DRUGS (2)
  1. DICLOFENAC SODIUM [Suspect]
     Indication: PAIN
     Dosage: 1 DF, BID
     Route: 054
  2. OMEPRAZOLE [Concomitant]
     Dosage: 1 DF, QD
     Route: 048

REACTIONS (1)
  - DEATH [None]
